FAERS Safety Report 7261935-8 (Version None)
Quarter: 2011Q1

REPORT INFORMATION
  Report Type: 
  Country: None (occurrence: None)
  Receive Date: 20110130
  Receipt Date: 20101130
  Transmission Date: 20110831
  Serious: No
  Sender: FDA-Public Use
  Company Number: US-ABBOTT-10P-163-0688990-00

PATIENT
  Sex: Male
  Weight: 76.272 kg

DRUGS (3)
  1. HUMIRA [Suspect]
     Route: 058
     Dates: start: 20080101, end: 20090101
  2. HUMIRA [Suspect]
     Indication: PSORIATIC ARTHROPATHY
     Route: 058
     Dates: start: 20080101, end: 20080101
  3. HUMIRA [Suspect]
     Route: 058
     Dates: start: 20101001

REACTIONS (6)
  - PSORIASIS [None]
  - ARTHRALGIA [None]
  - INCORRECT DOSE ADMINISTERED [None]
  - CELLULITIS [None]
  - ARTHROPOD BITE [None]
  - LOCALISED OEDEMA [None]
